FAERS Safety Report 4417006-9 (Version None)
Quarter: 2004Q3

REPORT INFORMATION
  Report Type: 
  Country: None (occurrence: None)
  Receive Date: 20040802
  Receipt Date: 20040721
  Transmission Date: 20050211
  Serious: Yes (Hospitalization, Other)
  Sender: FDA-Public Use
  Company Number: HQ5892723DEC2002

PATIENT
  Age: 62 Year
  Sex: Male
  Weight: 75 kg

DRUGS (7)
  1. MYLOTARG [Suspect]
     Indication: ACUTE MYELOID LEUKAEMIA
     Dosage: 15 MG 1X PER 1 DAY, INTRAVENOUS
     Route: 042
     Dates: start: 20020601, end: 20020601
  2. MYLOTARG [Suspect]
     Indication: ACUTE MYELOID LEUKAEMIA
     Dosage: 15 MG 1X PER 1 DAY, INTRAVENOUS
     Route: 042
     Dates: start: 20020604, end: 20020604
  3. COMPAZINE [Concomitant]
  4. ALLOPURINOL [Concomitant]
  5. SPORANOX [Concomitant]
  6. ACYCLOVIR [Concomitant]
  7. CIPROFLOXACIN [Concomitant]

REACTIONS (2)
  - FEBRILE NEUTROPENIA [None]
  - PANCYTOPENIA [None]
